FAERS Safety Report 18646036 (Version 2)
Quarter: 2021Q1

REPORT INFORMATION
  Report Type: Report from Study
  Country: US (occurrence: US)
  Receive Date: 20201222
  Receipt Date: 20210223
  Transmission Date: 20210419
  Serious: Yes (Other)
  Sender: FDA-Public Use
  Company Number: US-BIOGEN-2020BI00958971

PATIENT
  Sex: Female

DRUGS (5)
  1. AVONEX PEN [Suspect]
     Active Substance: INTERFERON BETA-1A
     Indication: MULTIPLE SCLEROSIS
     Route: 030
     Dates: start: 20200129, end: 20201106
  2. AVONEX PEN [Suspect]
     Active Substance: INTERFERON BETA-1A
  3. ALEVE [Suspect]
     Active Substance: NAPROXEN SODIUM
     Indication: PREMEDICATION
     Route: 065
  4. AVONEX PEN [Suspect]
     Active Substance: INTERFERON BETA-1A
  5. AVONEX PEN [Suspect]
     Active Substance: INTERFERON BETA-1A

REACTIONS (2)
  - Influenza like illness [Recovered/Resolved]
  - Blood pressure increased [Recovered/Resolved]
